FAERS Safety Report 21375960 (Version 4)
Quarter: 2022Q4

REPORT INFORMATION
  Report Type: Report from Study
  Country: CA (occurrence: CA)
  Receive Date: 20220926
  Receipt Date: 20221219
  Transmission Date: 20230113
  Serious: Yes (Other)
  Sender: FDA-Public Use
  Company Number: CA-GLAXOSMITHKLINE-CA2022AMR123145

PATIENT

DRUGS (5)
  1. MEPOLIZUMAB [Suspect]
     Active Substance: MEPOLIZUMAB
     Indication: Asthma
     Dosage: 100 MG, Z, EVERY 4 WEEKS
     Route: 058
     Dates: start: 20220110
  2. MEPOLIZUMAB [Suspect]
     Active Substance: MEPOLIZUMAB
     Indication: Asthma
     Dosage: 100 MG, Z (EVERY 4 WEEKS)
     Route: 058
     Dates: start: 20220110
  3. MEPOLIZUMAB [Suspect]
     Active Substance: MEPOLIZUMAB
     Indication: Asthma
     Dosage: 100 MG, Z EVERY 4 WEEKS
     Route: 058
     Dates: start: 20220110
  4. MEPOLIZUMAB [Suspect]
     Active Substance: MEPOLIZUMAB
     Indication: Asthma
     Dosage: 100 MG, Z, EVERY 4 WEEKS
     Route: 058
     Dates: start: 20220110
  5. FERROUS GLUCONATE [Suspect]
     Active Substance: FERROUS GLUCONATE
     Indication: Product used for unknown indication
     Dosage: 320 MG, Z, 1 PILL DAILY

REACTIONS (21)
  - Gastric ulcer [Unknown]
  - Oxygen saturation decreased [Unknown]
  - Injection site pain [Recovered/Resolved]
  - Pyrexia [Unknown]
  - Cough [Unknown]
  - Nasal congestion [Unknown]
  - Fatigue [Unknown]
  - Polyp [Unknown]
  - Respiratory rate increased [Unknown]
  - Blood pressure systolic increased [Unknown]
  - Onychoclasis [Unknown]
  - Influenza [Unknown]
  - Productive cough [Unknown]
  - Sinusitis [Unknown]
  - Wheezing [Unknown]
  - Urinary tract infection [Unknown]
  - Chest discomfort [Unknown]
  - Blood iron decreased [Unknown]
  - Dizziness [Unknown]
  - Abdominal pain upper [Not Recovered/Not Resolved]
  - Abdominal distension [Not Recovered/Not Resolved]

NARRATIVE: CASE EVENT DATE: 20220901
